FAERS Safety Report 4682073-4 (Version None)
Quarter: 2005Q2

REPORT INFORMATION
  Report Type: 
  Country: None (occurrence: None)
  Receive Date: 20050602
  Receipt Date: 20050525
  Transmission Date: 20051028
  Serious: Yes (Hospitalization)
  Sender: FDA-Public Use
  Company Number: 200511607GDS

PATIENT
  Age: 63 Year
  Sex: Male
  Weight: 86 kg

DRUGS (11)
  1. ASPIRIN [Suspect]
     Indication: ISCHAEMIC HEART DISEASE PROPHYLAXIS
     Dosage: 150 MG, TOTAL DAILY, ORAL
     Route: 048
  2. TELMISARTAN [Suspect]
     Indication: DIABETIC NEPHROPATHY
     Dosage: 80 MG, TOTAL DAILY, ORAL
     Route: 048
     Dates: start: 20041116
  3. TELMISARTAN [Suspect]
     Indication: HYPERTENSION
     Dosage: 80 MG, TOTAL DAILY, ORAL
     Route: 048
     Dates: start: 20041116
  4. FUROSEMIDE [Concomitant]
  5. DIAMICRON MR [Concomitant]
  6. AMARYL [Concomitant]
  7. METOPROLOL [Concomitant]
  8. DAFLON [Concomitant]
  9. ALLOPURINOL [Concomitant]
  10. PRAVASTATIN [Concomitant]
  11. LACTULOSE [Concomitant]

REACTIONS (2)
  - ANAEMIA [None]
  - CONDITION AGGRAVATED [None]
